FAERS Safety Report 24705392 (Version 1)
Quarter: 2024Q4

REPORT INFORMATION
  Report Type: Spontaneous
  Country: TR (occurrence: TR)
  Receive Date: 20241206
  Receipt Date: 20241206
  Transmission Date: 20250115
  Serious: Yes (Other)
  Sender: RANBAXY
  Company Number: TR-SUN PHARMACEUTICAL INDUSTRIES LTD-2024R1-482463

PATIENT
  Age: 27 Year
  Sex: Male

DRUGS (1)
  1. MIRTAZAPINE [Suspect]
     Active Substance: MIRTAZAPINE
     Indication: Progressive multifocal leukoencephalopathy
     Dosage: 15 MILLIGRAM, QD
     Route: 065

REACTIONS (3)
  - Condition aggravated [Unknown]
  - Dysdiadochokinesis [Unknown]
  - Dysmetria [Unknown]
